FAERS Safety Report 13074256 (Version 2)
Quarter: 2017Q1

REPORT INFORMATION
  Report Type: Spontaneous
  Country: US (occurrence: US)
  Receive Date: 20161230
  Receipt Date: 20170305
  Transmission Date: 20170428
  Serious: Yes (Other)
  Sender: FDA-Public Use
  Company Number: US-ROCHE-1873195

PATIENT
  Age: 55 Year
  Sex: Male

DRUGS (2)
  1. PREDNISONE. [Concomitant]
     Active Substance: PREDNISONE
     Indication: MALIGNANT MELANOMA
  2. ZELBORAF [Suspect]
     Active Substance: VEMURAFENIB
     Indication: MALIGNANT MELANOMA
     Dosage: 4 TABLETS BY MOUTH TWICE A DAY
     Route: 048

REACTIONS (8)
  - Disease progression [Unknown]
  - Depressed mood [Unknown]
  - Drug ineffective [Unknown]
  - Rash [Unknown]
  - Fatigue [Unknown]
  - Diarrhoea [Unknown]
  - Rash erythematous [Unknown]
  - Heart rate increased [Unknown]
